FAERS Safety Report 24313175 (Version 1)
Quarter: 2024Q3

REPORT INFORMATION
  Report Type: Spontaneous
  Country: US (occurrence: US)
  Receive Date: 20240912
  Receipt Date: 20240912
  Transmission Date: 20241017
  Serious: Yes (Other)
  Sender: CMP PHARMA
  Company Number: US-CMP PHARMA-2024CMP00053

PATIENT
  Age: 34 Year
  Sex: Male

DRUGS (8)
  1. TRIAMCINOLONE [Suspect]
     Active Substance: TRIAMCINOLONE
     Indication: Alopecia areata
     Dosage: 2.5 MG/ML, 3 ML TO THE SCALP
     Dates: start: 201712
  2. TRIAMCINOLONE [Suspect]
     Active Substance: TRIAMCINOLONE
     Dosage: 2 CC, 2.5 MG/CC WERE ADMINISTERED EVERY 3 MONTHS
     Dates: start: 202010
  3. TRIAMCINOLONE [Suspect]
     Active Substance: TRIAMCINOLONE
     Dosage: 9 CC INJECTIONS TO THE SCALP AND EYEBROWS
     Dates: start: 202201
  4. TRIAMCINOLONE [Suspect]
     Active Substance: TRIAMCINOLONE
     Dosage: 9 CC INJECTIONS TO THE SCALP AND EYEBROWS
     Dates: start: 202202
  5. MINOXIDIL [Concomitant]
     Active Substance: MINOXIDIL
     Indication: Alopecia areata
  6. CLOBETASOL [Concomitant]
     Active Substance: CLOBETASOL
     Indication: Alopecia areata
  7. FINASTERIDE [Concomitant]
     Active Substance: FINASTERIDE
     Indication: Alopecia areata
  8. RUXOLITINIB [Concomitant]
     Active Substance: RUXOLITINIB
     Indication: Alopecia areata
     Route: 061

REACTIONS (1)
  - Central serous chorioretinopathy [Recovering/Resolving]

NARRATIVE: CASE EVENT DATE: 20220301
